FAERS Safety Report 12968125 (Version 1)
Quarter: 2016Q4

REPORT INFORMATION
  Report Type: Report from Study
  Country: US (occurrence: US)
  Receive Date: 20161123
  Receipt Date: 20161123
  Transmission Date: 20170207
  Serious: Yes (Death, Hospitalization, Other)
  Sender: FDA-Public Use
  Company Number: US-BAYER-2015-427650

PATIENT
  Age: 52 Year
  Sex: Female
  Weight: 92.63 kg

DRUGS (12)
  1. NARCAN [Concomitant]
     Active Substance: NALOXONE HYDROCHLORIDE
  2. ADEMPAS [Suspect]
     Active Substance: RIOCIGUAT
     Indication: PULMONARY HYPERTENSION
     Dosage: 2.5 MG, TID
     Route: 048
  3. OXYGEN. [Concomitant]
     Active Substance: OXYGEN
  4. ADEMPAS [Suspect]
     Active Substance: RIOCIGUAT
     Indication: PULMONARY HYPERTENSION
     Dosage: 1 MG, TID
     Route: 048
  5. ADEMPAS [Suspect]
     Active Substance: RIOCIGUAT
     Indication: PULMONARY HYPERTENSION
     Dosage: 2.5 MG, TID
     Route: 048
  6. ADEMPAS [Suspect]
     Active Substance: RIOCIGUAT
     Indication: PULMONARY HYPERTENSION
     Dosage: UNK
     Route: 048
     Dates: start: 20150908
  7. TYVASO [Suspect]
     Active Substance: TREPROSTINIL
  8. OPSUMIT [Concomitant]
     Active Substance: MACITENTAN
  9. ADEMPAS [Suspect]
     Active Substance: RIOCIGUAT
     Indication: PULMONARY HYPERTENSION
     Dosage: 2.5 MG, TID
     Route: 048
  10. ADEMPAS [Suspect]
     Active Substance: RIOCIGUAT
     Indication: PULMONARY HYPERTENSION
     Dosage: 2.5 MG, TID
     Route: 048
  11. COUMADIN [Concomitant]
     Active Substance: WARFARIN SODIUM
  12. ADEMPAS [Suspect]
     Active Substance: RIOCIGUAT
     Indication: PULMONARY HYPERTENSION
     Dosage: 2.5 MG, TID
     Route: 048

REACTIONS (23)
  - Chronic kidney disease [Recovered/Resolved]
  - Hypovolaemia [None]
  - Catheterisation cardiac [None]
  - Death [Fatal]
  - Dyspnoea [None]
  - Vomiting [None]
  - Diarrhoea [None]
  - Anaemia [Unknown]
  - Headache [Unknown]
  - Headache [None]
  - Oedema peripheral [None]
  - Gastrointestinal arteriovenous malformation [None]
  - Hospitalisation [None]
  - Epistaxis [Unknown]
  - Headache [Not Recovered/Not Resolved]
  - Dyspnoea [Unknown]
  - Influenza [None]
  - Chest pain [None]
  - Dyspnoea [Unknown]
  - Adverse event [Unknown]
  - Transfusion [Unknown]
  - Cough [Unknown]
  - Oxygen saturation decreased [Unknown]

NARRATIVE: CASE EVENT DATE: 20150915
